FAERS Safety Report 5857720-1 (Version None)
Quarter: 2008Q3

REPORT INFORMATION
  Report Type: 
  Country: None (occurrence: None)
  Receive Date: 20080825
  Receipt Date: 20080825
  Transmission Date: 20090109
  Serious: No
  Sender: FDA-Public Use
  Company Number: None

PATIENT
  Age: 60 Year
  Sex: Female
  Weight: 49.8957 kg

DRUGS (2)
  1. SYNTHROID [Suspect]
     Dosage: 25 MG 1 PER DAY PO
     Route: 048
  2. LEVOXYL [Suspect]

REACTIONS (11)
  - ANGER [None]
  - CRYSTAL URINE PRESENT [None]
  - CYSTITIS INTERSTITIAL [None]
  - DIARRHOEA [None]
  - HAEMORRHOIDS [None]
  - INSOMNIA [None]
  - IRRITABILITY [None]
  - NAUSEA [None]
  - OVERDOSE [None]
  - TACHYCARDIA [None]
  - TREMOR [None]
